FAERS Safety Report 10962696 (Version 1)
Quarter: 2015Q1

REPORT INFORMATION
  Report Type: Spontaneous
  Country: US (occurrence: US)
  Receive Date: 20150327
  Receipt Date: 20150327
  Transmission Date: 20150721
  Serious: Yes (Other)
  Sender: FDA-Public Use
  Company Number: PHEH2015US005131

PATIENT
  Sex: Female

DRUGS (1)
  1. GLEEVEC [Suspect]
     Active Substance: IMATINIB MESYLATE
     Indication: CHRONIC MYELOID LEUKAEMIA
     Route: 048
     Dates: start: 20081201, end: 20141201

REACTIONS (5)
  - Ligament rupture [Unknown]
  - Joint injury [Unknown]
  - Treatment failure [Unknown]
  - Drug resistance [Unknown]
  - Decreased activity [Unknown]

NARRATIVE: CASE EVENT DATE: 20110101
